FAERS Safety Report 8877414 (Version 1)
Quarter: 2012Q4

REPORT INFORMATION
  Report Type: Spontaneous
  Country: DK (occurrence: None)
  Receive Date: 20121025
  Receipt Date: 20121025
  Transmission Date: 20130627
  Serious: Yes (Other)
  Sender: FDA-Public Use
  Company Number: 2012MA012704

PATIENT
  Sex: Male

DRUGS (2)
  1. MIRTAZAPINE [Suspect]
     Indication: PANIC ATTACKS
     Dosage: 45  MG:UNK;UNK
  2. DIAZEPAM [Concomitant]

REACTIONS (2)
  - Suicidal ideation [None]
  - Drug ineffective [None]
